FAERS Safety Report 6706584-2 (Version None)
Quarter: 2010Q2

REPORT INFORMATION
  Report Type: 
  Country: None (occurrence: None)
  Receive Date: 20100503
  Receipt Date: 20100423
  Transmission Date: 20101027
  Serious: Yes (Other)
  Sender: FDA-Public Use
  Company Number: US-ROCHE-679776

PATIENT
  Sex: Female

DRUGS (3)
  1. PEGASYS [Suspect]
     Indication: HEPATITIS C
     Dosage: FORM: PRE-FILLED SYRINGE, IN WEEK 30
     Route: 065
     Dates: start: 20090928
  2. RIBAVIRIN [Suspect]
     Indication: HEPATITIS C
     Dosage: IN WEEK-30
     Route: 065
     Dates: start: 20090928
  3. IRON [Concomitant]

REACTIONS (7)
  - ANAEMIA [None]
  - CHEST PAIN [None]
  - DIZZINESS [None]
  - DYSPNOEA [None]
  - FATIGUE [None]
  - SYNCOPE [None]
  - THERAPEUTIC RESPONSE DECREASED [None]
